FAERS Safety Report 11098367 (Version 1)
Quarter: 2015Q2

REPORT INFORMATION
  Report Type: Report from Study
  Country: LB (occurrence: LB)
  Receive Date: 20150507
  Receipt Date: 20150507
  Transmission Date: 20150821
  Serious: Yes (Hospitalization)
  Sender: FDA-Public Use
  Company Number: LB-ABBVIE-15K-093-1384330-00

PATIENT
  Age: 49 Year
  Sex: Female
  Weight: 68 kg

DRUGS (1)
  1. HUMIRA [Suspect]
     Active Substance: ADALIMUMAB
     Indication: ANKYLOSING SPONDYLITIS
     Route: 058
     Dates: start: 20150217, end: 20150325

REACTIONS (4)
  - Eye pain [Recovered/Resolved]
  - Vision blurred [Recovered/Resolved]
  - Urinary tract infection [Recovered/Resolved]
  - Cranial nerve infection [Recovered/Resolved]

NARRATIVE: CASE EVENT DATE: 20150404
